FAERS Safety Report 4905086-3 (Version None)
Quarter: 2006Q1

REPORT INFORMATION
  Report Type: 
  Country: None (occurrence: None)
  Receive Date: 20060203
  Receipt Date: 20060127
  Transmission Date: 20060701
  Serious: Yes (Other)
  Sender: FDA-Public Use
  Company Number: 2006AP000047

PATIENT
  Age: 68 Year
  Sex: Male

DRUGS (2)
  1. TICLOPIDINE HYDROCHLORIDE                       (TICLOPIDINE HYDROCHLO [Suspect]
     Indication: PROPHYLAXIS
     Dosage: 250 MG; BID; SEE IMAGE
     Route: 048
  2. TICLOPIDINE HYDROCHLORIDE                       (TICLOPIDINE HYDROCHLO [Suspect]
     Indication: THROMBOSIS IN DEVICE
     Dosage: 250 MG; BID; SEE IMAGE
     Route: 048

REACTIONS (2)
  - HEPATITIS CHOLESTATIC [None]
  - PANCREATIC DISORDER [None]
